FAERS Safety Report 9155386 (Version 3)
Quarter: 2013Q2

REPORT INFORMATION
  Report Type: Spontaneous
  Country: PT (occurrence: PT)
  Receive Date: 20130311
  Receipt Date: 20130501
  Transmission Date: 20140414
  Serious: Yes (Death)
  Sender: FDA-Public Use
  Company Number: PT-GENZYME-CAMP-1002775

PATIENT
  Age: 55 Year
  Sex: Male
  Weight: 87 kg

DRUGS (9)
  1. CAMPATH [Suspect]
     Indication: BONE MARROW CONDITIONING REGIMEN
     Dosage: 20 MG,QD X5
     Route: 042
     Dates: start: 20070925, end: 20070929
  2. FLUDARA [Suspect]
     Indication: BONE MARROW CONDITIONING REGIMEN
     Dosage: 30 MG/M2, QD X5
     Route: 042
     Dates: start: 20070924, end: 20070928
  3. BUSULPHAN [Suspect]
     Indication: BONE MARROW CONDITIONING REGIMEN
     Dosage: 3.2 MG/KG, QD X2
     Route: 042
     Dates: start: 20070929, end: 20070930
  4. TACROLIMUS [Suspect]
     Indication: PROPHYLAXIS AGAINST GRAFT VERSUS HOST DISEASE
     Dosage: 0.03 MG/KG (QD)
     Route: 042
     Dates: start: 20071001, end: 20080505
  5. MYCOPHENOLATE [Suspect]
     Indication: PROPHYLAXIS AGAINST GRAFT VERSUS HOST DISEASE
     Dosage: 1000 MG, QD (12/12 HOUR)
     Route: 042
     Dates: start: 20071003, end: 20080429
  6. PREDNISOLONE [Suspect]
     Indication: ACUTE GRAFT VERSUS HOST DISEASE
     Dosage: 75 MG, QD
     Route: 048
     Dates: start: 20071029, end: 20071227
  7. PREDNISOLONE [Suspect]
     Indication: GRAFT VERSUS HOST DISEASE IN INTESTINE
     Dosage: UNK, HIGH DOSE
     Route: 065
  8. ITRACONAZOLE [Concomitant]
     Indication: ANTIFUNGAL PROPHYLAXIS
     Dosage: UNK
     Route: 065
  9. VORICONAZOLE [Concomitant]
     Indication: ANTIFUNGAL PROPHYLAXIS
     Dosage: 200 MG, BID
     Route: 048

REACTIONS (1)
  - Aspergillus infection [Fatal]
